FAERS Safety Report 6183751-0 (Version None)
Quarter: 2009Q2

REPORT INFORMATION
  Report Type: 
  Country: None (occurrence: None)
  Receive Date: 20090506
  Receipt Date: 20090506
  Transmission Date: 20091009
  Serious: Yes (Life-Threatening, Other)
  Sender: FDA-Public Use
  Company Number: None

PATIENT
  Age: 30 Year
  Sex: Female
  Weight: 99.7913 kg

DRUGS (2)
  1. RHOPHYLAC [Suspect]
     Indication: PREGNANCY
     Dosage: ONCE IM
     Route: 030
     Dates: start: 20090428, end: 20090428
  2. RHOPHYLAC [Suspect]
     Indication: RHESUS ANTIBODIES NEGATIVE
     Dosage: ONCE IM
     Route: 030
     Dates: start: 20090428, end: 20090428

REACTIONS (3)
  - LOSS OF CONSCIOUSNESS [None]
  - ROAD TRAFFIC ACCIDENT [None]
  - SYNCOPE [None]
